FAERS Safety Report 6264055-4 (Version None)
Quarter: 2009Q3

REPORT INFORMATION
  Report Type: 
  Country: None (occurrence: None)
  Receive Date: 20090710
  Receipt Date: 20090706
  Transmission Date: 20100115
  Serious: Yes (Death, Other)
  Sender: FDA-Public Use
  Company Number: PHHY2009BR28054

PATIENT
  Sex: Male

DRUGS (11)
  1. RITALIN [Suspect]
     Dosage: 10 MG, UNK
     Route: 048
  2. DEMEROL [Suspect]
     Dosage: 2 INJECTIONS PER DAY
  3. VISTARIL [Suspect]
     Dosage: 2 INJECTIONS PER DAY
  4. DILAUDID [Suspect]
     Dosage: 3 MG, BID
  5. XANAX [Suspect]
     Dosage: 250 MG, UNK
  6. ZOLOFT [Suspect]
     Dosage: 100 MG, UNK
  7. PROZAC [Suspect]
     Dosage: 20 MG, UNK
  8. PRILOSEC [Suspect]
     Dosage: UNK
  9. BOTOX [Concomitant]
     Dosage: UNK
  10. COLLAGEN [Concomitant]
     Dosage: UNK
  11. ANESTHETICS [Concomitant]
     Dosage: UNK

REACTIONS (2)
  - CARDIAC ARREST [None]
  - DRUG DEPENDENCE [None]
